FAERS Safety Report 11690640 (Version 2)
Quarter: 2016Q1

REPORT INFORMATION
  Report Type: Report from Study
  Country: DE (occurrence: DE)
  Receive Date: 20151102
  Receipt Date: 20160113
  Transmission Date: 20160525
  Serious: Yes (Life-Threatening, Hospitalization)
  Sender: FDA-Public Use
  Company Number: DE-ABBVIE-15P-062-1490828-00

PATIENT
  Age: 67 Year
  Sex: Female
  Weight: 55 kg

DRUGS (8)
  1. DOMPERIDON [Concomitant]
     Active Substance: DOMPERIDONE
     Indication: PRODUCT USED FOR UNKNOWN INDICATION
  2. DUODOPA [Suspect]
     Active Substance: CARBIDOPA\LEVODOPA
     Indication: PARKINSON^S DISEASE
     Dosage: MD 2,8ML / CDR 2,8ML/H / CNR 2,8ML/H / ED 1,5ML, VARYING DOSE
     Route: 050
     Dates: start: 20090526
  3. NEURO-RATIOPHARM N [Concomitant]
     Indication: PRODUCT USED FOR UNKNOWN INDICATION
  4. CLOZAPIN [Concomitant]
     Active Substance: CLOZAPINE
     Indication: PRODUCT USED FOR UNKNOWN INDICATION
  5. OMEPRAZOLE. [Concomitant]
     Active Substance: OMEPRAZOLE
     Indication: PRODUCT USED FOR UNKNOWN INDICATION
  6. ASA [Concomitant]
     Active Substance: ASPIRIN
     Indication: PRODUCT USED FOR UNKNOWN INDICATION
  7. VITAMIN B12 [Concomitant]
     Active Substance: CYANOCOBALAMIN
     Indication: PRODUCT USED FOR UNKNOWN INDICATION
  8. AMANTADIN [Concomitant]
     Active Substance: AMANTADINE
     Indication: PRODUCT USED FOR UNKNOWN INDICATION

REACTIONS (10)
  - Sepsis [Recovered/Resolved]
  - Gallbladder operation [Not Recovered/Not Resolved]
  - Impaired healing [Recovered/Resolved]
  - Stoma site erythema [Unknown]
  - Cholecystitis [Recovered/Resolved]
  - Wound infection [Unknown]
  - Stoma site discharge [Unknown]
  - Hyperkinesia [Not Recovered/Not Resolved]
  - Urosepsis [Not Recovered/Not Resolved]
  - Delirium [Recovered/Resolved]

NARRATIVE: CASE EVENT DATE: 201510
